FAERS Safety Report 22628950 (Version 2)
Quarter: 2024Q3

REPORT INFORMATION
  Report Type: Spontaneous
  Country: GB (occurrence: None)
  Receive Date: 20230622
  Receipt Date: 20240716
  Transmission Date: 20241016
  Serious: Yes (Death, Life-Threatening, Hospitalization, Other)
  Sender: ORION
  Company Number: GB-PFIZER INC-PV202300105804

PATIENT
  Age: 5 Decade
  Sex: Female

DRUGS (7)
  1. METHOTREXATE [Suspect]
     Active Substance: METHOTREXATE
     Indication: Rheumatic disorder
  2. AMPHOTERICIN B [Suspect]
     Active Substance: AMPHOTERICIN B
     Indication: Mucormycosis
  3. AMPHOTERICIN B [Suspect]
     Active Substance: AMPHOTERICIN B
     Indication: Disseminated mucormycosis
  4. VORICONAZOLE [Suspect]
     Active Substance: VORICONAZOLE
     Indication: Mucormycosis
  5. VORICONAZOLE [Suspect]
     Active Substance: VORICONAZOLE
     Indication: Disseminated mucormycosis
  6. FLUCONAZOLE [Suspect]
     Active Substance: FLUCONAZOLE
     Indication: Mucormycosis
  7. FLUCONAZOLE [Suspect]
     Active Substance: FLUCONAZOLE
     Indication: Disseminated mucormycosis

REACTIONS (9)
  - Disseminated mucormycosis [Fatal]
  - Mucormycosis [Fatal]
  - Neutropenic sepsis [Unknown]
  - Multiple organ dysfunction syndrome [Unknown]
  - Hypertension [Not Recovered/Not Resolved]
  - Shock [Unknown]
  - Pancytopenia [Unknown]
  - Immunosuppression [Unknown]
  - Toxicity to various agents [Unknown]
